FAERS Safety Report 10283740 (Version 1)
Quarter: 2014Q3

REPORT INFORMATION
  Report Type: Spontaneous
  Country: US (occurrence: US)
  Receive Date: 20140708
  Receipt Date: 20140708
  Transmission Date: 20150326
  Serious: Yes (Life-Threatening, Hospitalization, Other)
  Sender: FDA-Public Use
  Company Number: US-PFIZER INC-2014181802

PATIENT
  Age: 66 Year
  Sex: Female

DRUGS (12)
  1. COMPAZINE [Concomitant]
     Active Substance: PROCHLORPERAZINE MALEATE
     Indication: NAUSEA
     Dosage: 5 MG, 3X/DAY
     Route: 048
  2. EVISTA [Concomitant]
     Active Substance: RALOXIFENE HYDROCHLORIDE
     Dosage: 60 MG, DAILY
  3. DIOVAN [Concomitant]
     Active Substance: VALSARTAN
     Dosage: 80, 1X/DAY
  4. COLACE [Concomitant]
     Active Substance: DOCUSATE SODIUM
     Dosage: 2 DF, 1X/DAY (2 TABLETS A DAY)
  5. SUTENT [Suspect]
     Active Substance: SUNITINIB MALATE
     Indication: METASTATIC RENAL CELL CARCINOMA
     Dosage: 50 MG, DAILY (ON 4 WEEKS, OFF 2 WEEKS)
     Route: 048
  6. COMPAZINE [Concomitant]
     Active Substance: PROCHLORPERAZINE MALEATE
     Indication: VOMITING
  7. SYNTHROID [Concomitant]
     Active Substance: LEVOTHYROXINE SODIUM
     Dosage: 50 UG, 1X/DAY
  8. VITAMIN B6 [Concomitant]
     Active Substance: PYRIDOXINE HYDROCHLORIDE
     Dosage: UNK
  9. NORCO [Concomitant]
     Active Substance: ACETAMINOPHEN\HYDROCODONE BITARTRATE
     Dosage: 5/325, AS NEEDED
  10. TRADJENTA [Concomitant]
     Active Substance: LINAGLIPTIN
     Dosage: 5 MG, DAILY
     Route: 048
  11. PRILOSEC [Concomitant]
     Active Substance: OMEPRAZOLE MAGNESIUM
     Dosage: 20 MG, DAILY
  12. METOPROLOL [Concomitant]
     Active Substance: METOPROLOL
     Dosage: 25 MG, 2X/DAY

REACTIONS (9)
  - Diarrhoea [Unknown]
  - Abdominal discomfort [Unknown]
  - Asthenia [Recovering/Resolving]
  - Streptococcal bacteraemia [Unknown]
  - Dehydration [Recovered/Resolved]
  - Thrombocytopenia [Unknown]
  - Metabolic acidosis [Unknown]
  - Septic shock [Unknown]
  - Renal failure acute [Recovered/Resolved]
